FAERS Safety Report 4535328-8 (Version None)
Quarter: 2004Q4

REPORT INFORMATION
  Report Type: 
  Country: None (occurrence: None)
  Receive Date: 20041214
  Receipt Date: 20040916
  Transmission Date: 20050328
  Serious: No
  Sender: FDA-Public Use
  Company Number: 2004236625US

PATIENT
  Age: 62 Year
  Sex: Female
  Weight: 90.7 kg

DRUGS (10)
  1. BEXTRA [Suspect]
     Indication: ARTHRITIS
     Dosage: 20 MG, QD, ORAL
     Route: 048
     Dates: start: 20040914
  2. SYNTHROID [Concomitant]
  3. MECLIZINE [Concomitant]
  4. VALIUM [Concomitant]
  5. HUMIBID [Concomitant]
  6. BECONASE (BECLOMETASONE DIPROPIONATE) [Concomitant]
  7. ENTAL [Concomitant]
  8. BLC COMPLEX [Concomitant]
  9. CALTRATE [Concomitant]
  10. CENTRUM SILVER (RETINOL, VITAMINS NOS, VITAMIN B NOS) [Concomitant]

REACTIONS (3)
  - FLUID RETENTION [None]
  - URINE OUTPUT INCREASED [None]
  - WEIGHT INCREASED [None]
